FAERS Safety Report 7638762-2 (Version None)
Quarter: 2011Q3

REPORT INFORMATION
  Report Type: 
  Country: None (occurrence: None)
  Receive Date: 20110727
  Receipt Date: 20110718
  Transmission Date: 20111222
  Serious: Yes (Hospitalization, Other)
  Sender: FDA-Public Use
  Company Number: ES-SANOFI-AVENTIS-2011SA041474

PATIENT
  Age: 72 Year
  Sex: Female

DRUGS (9)
  1. VENTOLIN [Concomitant]
     Indication: CHRONIC OBSTRUCTIVE PULMONARY DISEASE
  2. ISOPHANE INSULIN [Concomitant]
     Indication: TYPE 2 DIABETES MELLITUS
  3. ELOXATIN [Suspect]
     Dates: start: 20110718
  4. FLUTICASONE PROPIONATE [Concomitant]
     Indication: CHRONIC OBSTRUCTIVE PULMONARY DISEASE
     Dates: start: 20090101
  5. BISOPROLOL FUMARATE [Concomitant]
     Indication: HYPERTENSION
  6. METFORMIN HCL [Concomitant]
     Indication: TYPE 2 DIABETES MELLITUS
  7. ELOXATIN [Suspect]
     Route: 042
     Dates: start: 20110627, end: 20110630
  8. AMLODIPINE BESYLATE [Concomitant]
     Indication: HYPERTENSION
  9. OMEPRAZOLE [Concomitant]

REACTIONS (5)
  - PNEUMOTHORAX [None]
  - SUBCUTANEOUS EMPHYSEMA [None]
  - EXTRAVASATION [None]
  - DYSPNOEA [None]
  - CHEST PAIN [None]
